FAERS Safety Report 21039579 (Version 1)
Quarter: 2022Q3

REPORT INFORMATION
  Report Type: Spontaneous
  Country: FR (occurrence: FR)
  Receive Date: 20220704
  Receipt Date: 20220704
  Transmission Date: 20221027
  Serious: Yes (Other)
  Sender: FDA-Public Use
  Company Number: None

PATIENT
  Age: 58 Year
  Sex: Male
  Weight: 70 kg

DRUGS (9)
  1. CLINDAMYCIN HYDROCHLORIDE [Suspect]
     Active Substance: CLINDAMYCIN HYDROCHLORIDE
     Indication: Bacteraemia
     Dosage: 1.8 G, 1X/DAY (6 CAPSULES OF 300 MG DAILY)
     Route: 048
     Dates: start: 20220531
  2. ZOPICLONE [Suspect]
     Active Substance: ZOPICLONE
     Indication: Insomnia
     Dosage: 1 DF, 1X/DAY
     Route: 048
     Dates: start: 20220525
  3. FUSIDATE SODIUM [Suspect]
     Active Substance: FUSIDATE SODIUM
     Indication: Bacteraemia
     Dosage: 1.5 G, 1X/DAY (6 X 250 MG DAILY)
     Route: 048
     Dates: start: 202205
  4. SIVEXTRO [Suspect]
     Active Substance: TEDIZOLID PHOSPHATE
     Indication: Bacteraemia
     Dosage: 1 DF, 1X/DAY
     Route: 048
     Dates: start: 20220527
  5. FOLIC ACID [Concomitant]
     Active Substance: FOLIC ACID
  6. RAMIPRIL [Concomitant]
     Active Substance: RAMIPRIL
  7. LERCANIDIPINE HYDROCHLORIDE [Concomitant]
     Active Substance: LERCANIDIPINE HYDROCHLORIDE
  8. ALPRAZOLAM [Concomitant]
     Active Substance: ALPRAZOLAM
  9. SACCHAROMYCES CEREVISIAE [Concomitant]
     Active Substance: SACCHAROMYCES CEREVISIAE

REACTIONS (3)
  - Tooth discolouration [Not Recovered/Not Resolved]
  - Dysgeusia [Not Recovered/Not Resolved]
  - Off label use [Unknown]

NARRATIVE: CASE EVENT DATE: 20220531
